FAERS Safety Report 16676743 (Version 2)
Quarter: 2020Q3

REPORT INFORMATION
  Report Type: Spontaneous
  Country: US (occurrence: US)
  Receive Date: 20190807
  Receipt Date: 20200826
  Transmission Date: 20201102
  Serious: Yes (Death, Hospitalization, Other)
  Sender: FDA-Public Use
  Company Number: US-ASTRAZENECA-2019SF09627

PATIENT
  Age: 25367 Day
  Sex: Female
  Weight: 68.3 kg

DRUGS (43)
  1. CYCLOBENZAPRINE. [Concomitant]
     Active Substance: CYCLOBENZAPRINE
     Indication: MUSCLE SPASMS
     Dates: start: 200908, end: 200909
  2. OXYCODONE?ACETAMINOPHEN [Concomitant]
     Active Substance: ACETAMINOPHEN\OXYCODONE HYDROCHLORIDE
  3. CEPHALEXIN. [Concomitant]
     Active Substance: CEPHALEXIN
  4. MECLIZINE [Concomitant]
     Active Substance: MECLIZINE HYDROCHLORIDE
  5. MAGNESIUM OXIDE. [Concomitant]
     Active Substance: MAGNESIUM OXIDE
  6. NEXIUM [Suspect]
     Active Substance: ESOMEPRAZOLE MAGNESIUM
     Indication: GASTROOESOPHAGEAL REFLUX DISEASE
     Route: 048
     Dates: start: 2006, end: 2016
  7. PROPYLTHIOURACIL. [Concomitant]
     Active Substance: PROPYLTHIOURACIL
     Indication: THYROID DISORDER
     Dates: start: 201106, end: 201201
  8. LIPITOR [Concomitant]
     Active Substance: ATORVASTATIN CALCIUM
     Indication: BLOOD CHOLESTEROL
     Dates: start: 201112, end: 201409
  9. RANITIDINE. [Concomitant]
     Active Substance: RANITIDINE
     Dates: start: 201606, end: 201607
  10. HYDROXYZINE PAMOATE. [Concomitant]
     Active Substance: HYDROXYZINE PAMOATE
  11. VITAMIN D [Concomitant]
     Active Substance: VITAMIN D NOS
  12. MIRTAZAPINE. [Concomitant]
     Active Substance: MIRTAZAPINE
  13. SODIUM CHLORIDE. [Concomitant]
     Active Substance: SODIUM CHLORIDE
  14. NEXIUM [Suspect]
     Active Substance: ESOMEPRAZOLE MAGNESIUM
     Indication: GASTROOESOPHAGEAL REFLUX DISEASE
     Route: 048
     Dates: start: 201101, end: 201609
  15. POTASSIUM CHLORIDE. [Concomitant]
     Active Substance: POTASSIUM CHLORIDE
     Indication: SUPPLEMENTATION THERAPY
     Dates: start: 200608
  16. AMLODIPINE [Concomitant]
     Active Substance: AMLODIPINE BESYLATE
     Indication: BLOOD PRESSURE ABNORMAL
     Dates: start: 201112, end: 201510
  17. CLOPIDOGREL [Concomitant]
     Active Substance: CLOPIDOGREL BISULFATE
  18. SENNA [Concomitant]
     Active Substance: SENNA LEAF\SENNOSIDES\SENNOSIDES A AND B
  19. MAXITROL [Concomitant]
     Active Substance: DEXAMETHASONE\NEOMYCIN SULFATE\POLYMYXIN B SULFATE
  20. GABAPENTIN. [Concomitant]
     Active Substance: GABAPENTIN
     Indication: INSOMNIA
     Dates: start: 201211, end: 201606
  21. TRAZODONE [Concomitant]
     Active Substance: TRAZODONE HYDROCHLORIDE
     Indication: INSOMNIA
     Dates: start: 201107, end: 201108
  22. LOSARTAN. [Concomitant]
     Active Substance: LOSARTAN
     Indication: BLOOD PRESSURE ABNORMAL
     Dates: start: 201204, end: 201507
  23. ATENOLOL. [Concomitant]
     Active Substance: ATENOLOL
  24. IBUPROFEN. [Concomitant]
     Active Substance: IBUPROFEN
  25. ASPIRIN. [Concomitant]
     Active Substance: ASPIRIN
  26. FERROUS SULFATE. [Concomitant]
     Active Substance: FERROUS SULFATE
  27. BRIMONIDINE [Concomitant]
     Active Substance: BRIMONIDINE TARTRATE
  28. BISACODYL. [Concomitant]
     Active Substance: BISACODYL
  29. DOCUSATE [Concomitant]
     Active Substance: DOCUSATE
  30. NEXIUM [Suspect]
     Active Substance: ESOMEPRAZOLE MAGNESIUM
     Indication: GASTROOESOPHAGEAL REFLUX DISEASE
     Route: 048
     Dates: start: 201002, end: 201005
  31. HYDRALAZINE [Concomitant]
     Active Substance: HYDRALAZINE HYDROCHLORIDE
     Indication: DIURETIC THERAPY
     Dates: start: 201103, end: 201511
  32. CHLORZOXAZONE. [Concomitant]
     Active Substance: CHLORZOXAZONE
     Indication: MUSCLE SPASMS
     Dates: start: 201009, end: 201011
  33. PREDNISOLONE. [Concomitant]
     Active Substance: PREDNISOLONE
  34. NALOXONE [Concomitant]
     Active Substance: NALOXONE
  35. HEPARIN [Concomitant]
     Active Substance: HEPARIN SODIUM
  36. TRETINOIN. [Concomitant]
     Active Substance: TRETINOIN
     Indication: SKIN DISORDER
     Dates: start: 201108, end: 201507
  37. AMLODIPINE BESYLATE. [Concomitant]
     Active Substance: AMLODIPINE BESYLATE
  38. NEXIUM [Suspect]
     Active Substance: ESOMEPRAZOLE MAGNESIUM
     Indication: GASTROOESOPHAGEAL REFLUX DISEASE
     Route: 048
     Dates: start: 200603, end: 200609
  39. NEXIUM [Suspect]
     Active Substance: ESOMEPRAZOLE MAGNESIUM
     Indication: GASTROOESOPHAGEAL REFLUX DISEASE
     Route: 048
     Dates: start: 20150411
  40. DORZOLAMIDE?TIMOLOL [Concomitant]
     Active Substance: DORZOLAMIDE\TIMOLOL
  41. ZOSTAVAX [Concomitant]
     Active Substance: VARICELLA-ZOSTER VIRUS STRAIN OKA/MERCK LIVE ANTIGEN
  42. MAGNESIUM GLUCONATE [Concomitant]
     Active Substance: MAGNESIUM GLUCONATE
  43. FLUOROURACIL. [Concomitant]
     Active Substance: FLUOROURACIL

REACTIONS (7)
  - Nephrogenic anaemia [Unknown]
  - Acute kidney injury [Unknown]
  - Chronic kidney disease [Unknown]
  - End stage renal disease [Unknown]
  - Renal failure [Unknown]
  - Renal impairment [Unknown]
  - Renal tubular necrosis [Unknown]

NARRATIVE: CASE EVENT DATE: 20111104
